FAERS Safety Report 11097946 (Version 3)
Quarter: 2015Q4

REPORT INFORMATION
  Report Type: Spontaneous
  Country: US (occurrence: US)
  Receive Date: 20150507
  Receipt Date: 20151111
  Transmission Date: 20160304
  Serious: No
  Sender: FDA-Public Use
  Company Number: US-PFIZER INC-2014350431

PATIENT
  Age: 73 Year
  Sex: Male
  Weight: 78 kg

DRUGS (28)
  1. ZOLPIDEM [Concomitant]
     Active Substance: ZOLPIDEM\ZOLPIDEM TARTRATE
     Dosage: UNK
  2. XARELTO [Concomitant]
     Active Substance: RIVAROXABAN
     Dosage: 15 MG, DAILY
     Route: 048
     Dates: start: 20150517
  3. XALATAN [Concomitant]
     Active Substance: LATANOPROST
     Dosage: 1 GTT, DAILY (EVERY EVENING)
     Route: 047
  4. LISINOPRIL. [Concomitant]
     Active Substance: LISINOPRIL
     Dosage: UNK
  5. DEMADEX [Concomitant]
     Active Substance: TORSEMIDE
     Dosage: TAKE 0.5 TABS BY MOUTH DAILY
     Route: 048
     Dates: start: 20151028
  6. AMBIEN [Concomitant]
     Active Substance: ZOLPIDEM TARTRATE
     Dosage: 15 MG, DAILY
     Route: 048
  7. ZOLOFT [Concomitant]
     Active Substance: SERTRALINE HYDROCHLORIDE
     Dosage: 50 MG, DAILY
     Route: 048
  8. ZOLOFT [Concomitant]
     Active Substance: SERTRALINE HYDROCHLORIDE
     Dosage: 25 MG, DAILY (EVERY EVENING)
     Route: 048
  9. LORTAB [Concomitant]
     Active Substance: ACETAMINOPHEN\HYDROCODONE BITARTRATE
     Indication: PAIN
     Dosage: TAKE 1-2 TABS EVERY 6 HOURS AS NEEDED
     Route: 048
     Dates: start: 20090814
  10. REVATIO [Suspect]
     Active Substance: SILDENAFIL CITRATE
     Dosage: 20 MG, 3X/DAY
     Route: 048
     Dates: start: 20151009
  11. CIPRO [Concomitant]
     Active Substance: CIPROFLOXACIN HYDROCHLORIDE
     Dosage: 500 MG, UNK
     Dates: start: 20150810
  12. VIT B COMPLEX [Concomitant]
     Dosage: 1 DF, DAILY
     Route: 048
  13. REVATIO [Suspect]
     Active Substance: SILDENAFIL CITRATE
     Dosage: 40 MG, 3X/DAY (20 MG , 2 TABS BY MOUTH, 3 TIMES DAILY)
     Route: 048
  14. REVATIO [Suspect]
     Active Substance: SILDENAFIL CITRATE
     Dosage: 20 MG (2X3 DAY)
     Route: 048
     Dates: start: 2013
  15. DIGOXIN. [Concomitant]
     Active Substance: DIGOXIN
     Dosage: 0.125 MG, DAILY
     Route: 048
     Dates: start: 20151029
  16. LATANOPROST. [Concomitant]
     Active Substance: LATANOPROST
     Dosage: UNK
  17. VICODIN [Concomitant]
     Active Substance: ACETAMINOPHEN\HYDROCODONE BITARTRATE
     Indication: PAIN
     Dosage: UNK, AS NEEDED (1-2 TABS BY MOUTH EVERY 6 HOURS AS NEEDED)
     Route: 048
     Dates: start: 20090814
  18. SERTRALINE HCL [Concomitant]
     Active Substance: SERTRALINE HYDROCHLORIDE
     Dosage: 25 MG, DAILY
     Route: 048
  19. COREG [Concomitant]
     Active Substance: CARVEDILOL
     Dosage: TAKE 0.5 TABS TAKE 0.5 TABS BY MOUTH 2 TIMES DAILY (WITH MEALS). 6.25 MG IN AM AND 3.125 MG
     Route: 048
     Dates: start: 20151009
  20. ENTRESTO [Concomitant]
     Active Substance: SACUBITRIL\VALSARTAN
     Dosage: 1 DF, 2X/DAY
     Route: 048
     Dates: start: 20151009
  21. CYANOCOBALAMIN. [Concomitant]
     Active Substance: CYANOCOBALAMIN
     Dosage: 1000 ?G, DAILY
     Route: 048
  22. GLYCOLAX [Concomitant]
     Active Substance: POLYETHYLENE GLYCOL 3350
     Dosage: 17 G, DAILY
     Route: 048
  23. PRAVASTATIN [Concomitant]
     Active Substance: PRAVASTATIN\PRAVASTATIN SODIUM
     Dosage: 40 MG ONCE DAIILY EVERY EVENING
     Route: 048
     Dates: start: 20151029
  24. CARVEDILOL. [Concomitant]
     Active Substance: CARVEDILOL
     Dosage: UNK
  25. NITROSTAT [Concomitant]
     Active Substance: NITROGLYCERIN
     Indication: CHEST PAIN
     Dosage: 0.4 MG, AS NEEDED
     Route: 060
  26. REVATIO [Suspect]
     Active Substance: SILDENAFIL CITRATE
     Indication: PULMONARY ARTERIAL HYPERTENSION
     Dosage: 20 MG, UNK
     Route: 048
     Dates: start: 201206
  27. FUROSEMIDE. [Concomitant]
     Active Substance: FUROSEMIDE
     Dosage: UNK
  28. OMEGA 3 [Concomitant]
     Active Substance: OMEGA-3 FATTY ACIDS
     Dosage: 1000 MG ONCE DAILY (EVERY MORNING)
     Route: 048

REACTIONS (3)
  - Dyspnoea [Not Recovered/Not Resolved]
  - Fatigue [Not Recovered/Not Resolved]
  - Product use issue [Unknown]

NARRATIVE: CASE EVENT DATE: 201506
